FAERS Safety Report 12266842 (Version 1)
Quarter: 2016Q2

REPORT INFORMATION
  Report Type: Spontaneous
  Country: DE (occurrence: DE)
  Receive Date: 20160414
  Receipt Date: 20160414
  Transmission Date: 20160815
  Serious: Yes (Other)
  Sender: FDA-Public Use
  Company Number: DE-AUROBINDO-AUR-APL-2016-04481

PATIENT
  Age: 44 Year
  Sex: Female
  Weight: 77 kg

DRUGS (7)
  1. PANTOPRAZOLE [Concomitant]
     Active Substance: PANTOPRAZOLE SODIUM
     Indication: PROPHYLAXIS AGAINST GASTROINTESTINAL ULCER
     Dosage: 40 MG, DAILY
     Route: 048
     Dates: start: 20141127, end: 20150825
  2. LITHIUM. [Concomitant]
     Active Substance: LITHIUM
     Indication: BIPOLAR DISORDER
     Route: 048
  3. BISOPROLOL [Concomitant]
     Active Substance: BISOPROLOL
     Indication: GESTATIONAL HYPERTENSION
     Dosage: 1.25 MG, DAILY
     Route: 048
  4. OLANZAPINE. [Suspect]
     Active Substance: OLANZAPINE
     Indication: BIPOLAR DISORDER
     Dosage: 15 MG, DAILY
     Route: 048
     Dates: start: 20141127, end: 20150825
  5. FEMIBION [Concomitant]
     Active Substance: VITAMINS
     Indication: PROPHYLAXIS OF NEURAL TUBE DEFECT
     Route: 048
  6. AKINETON [Concomitant]
     Active Substance: BIPERIDEN HYDROCHLORIDE
     Indication: EXTRAPYRAMIDAL DISORDER
     Route: 048
  7. L-THYROX [Concomitant]
     Active Substance: LEVOTHYROXINE SODIUM
     Indication: HYPOTHYROIDISM
     Dosage: 100 MCG, DAILY
     Route: 048
     Dates: start: 20141127, end: 20150825

REACTIONS (2)
  - Gestational diabetes [Recovered/Resolved]
  - Exposure during pregnancy [Recovered/Resolved]
